FAERS Safety Report 22904592 (Version 2)
Quarter: 2024Q1

REPORT INFORMATION
  Report Type: Spontaneous
  Country: US (occurrence: US)
  Receive Date: 20230905
  Receipt Date: 20240210
  Transmission Date: 20240409
  Serious: No
  Sender: FDA-Public Use
  Company Number: US-ABBVIE-5391336

PATIENT
  Sex: Female
  Weight: 68 kg

DRUGS (7)
  1. ESTRACE [Suspect]
     Active Substance: ESTRADIOL
     Indication: Vulvovaginal dryness
     Dosage: FORM STRENGTH: 0.01 PERCENT?ONCE OR TWICE A WEEK
     Route: 065
     Dates: start: 202207, end: 202401
  2. ESTRACE [Suspect]
     Active Substance: ESTRADIOL
     Indication: Infection prophylaxis
  3. POTASSIUM CHLORIDE [Concomitant]
     Active Substance: POTASSIUM CHLORIDE
     Indication: Product used for unknown indication
  4. METFORMIN [Concomitant]
     Active Substance: METFORMIN HYDROCHLORIDE
     Indication: Diabetes mellitus
  5. LOSARTAN [Concomitant]
     Active Substance: LOSARTAN
     Indication: Hypertension
     Dosage: 100 MILLIGRAM
  6. LEVOTHYROXINE [Concomitant]
     Active Substance: LEVOTHYROXINE\LEVOTHYROXINE SODIUM
     Indication: Hypothyroidism
  7. ASPIRIN [Concomitant]
     Active Substance: ASPIRIN
     Indication: Product used for unknown indication
     Dosage: 90 MILLIGRAM

REACTIONS (5)
  - Feeling abnormal [Unknown]
  - Application site pain [Unknown]
  - Nipple pain [Recovered/Resolved]
  - Abdominal pain lower [Unknown]
  - Breast induration [Recovered/Resolved]

NARRATIVE: CASE EVENT DATE: 20220101
